FAERS Safety Report 10236457 (Version 1)
Quarter: 2014Q2

REPORT INFORMATION
  Report Type: Report from Study
  Country: US (occurrence: US)
  Receive Date: 20140613
  Receipt Date: 20140613
  Transmission Date: 20141212
  Serious: Yes (Other)
  Sender: FDA-Public Use
  Company Number: US-BRISTOL-MYERS SQUIBB COMPANY-20954814

PATIENT
  Age: 56 Year
  Sex: Female

DRUGS (1)
  1. ABATACEPT SUBQ INJECTION 125MG/ML [Suspect]
     Dosage: LAST INJECTION WAS 10JUN2013
     Route: 058
     Dates: start: 201301

REACTIONS (1)
  - Limb operation [Unknown]
